FAERS Safety Report 4995435-2 (Version None)
Quarter: 2006Q2

REPORT INFORMATION
  Report Type: 
  Country: None (occurrence: None)
  Receive Date: 20060503
  Receipt Date: 20060417
  Transmission Date: 20061013
  Serious: Yes (Hospitalization)
  Sender: FDA-Public Use
  Company Number: 2006BI005619

PATIENT
  Age: 53 Year
  Sex: Female
  Weight: 70.3075 kg

DRUGS (22)
  1. AVONEX [Suspect]
     Indication: MULTIPLE SCLEROSIS
     Dosage: 30 UG; QW; IM
     Route: 030
  2. B12 [Concomitant]
  3. ASCORBIC ACID [Concomitant]
  4. CALCIUM GLUCONATE [Concomitant]
  5. MULTIPLE VITAMIN [Concomitant]
  6. FOLIC ACID [Concomitant]
  7. PREVACID [Concomitant]
  8. SINGULAIR [Concomitant]
  9. EFFEXOR [Concomitant]
  10. PREMARIN [Concomitant]
  11. MOBIC [Concomitant]
  12. TRAZODONE HCL [Concomitant]
  13. NULEV [Concomitant]
  14. CLONAZEPAM [Concomitant]
  15. TOPAMAX [Concomitant]
  16. FLONASE [Concomitant]
  17. ZOFRAN [Concomitant]
  18. GLYCOLAX [Concomitant]
  19. LIDODERM PATCH [Concomitant]
  20. FIORICET [Concomitant]
  21. RESTASIS [Concomitant]
  22. RELPAX [Concomitant]

REACTIONS (10)
  - ANAEMIA [None]
  - DISEASE PROGRESSION [None]
  - DIZZINESS [None]
  - DYSPHAGIA [None]
  - FATIGUE [None]
  - INTESTINAL PERFORATION [None]
  - MULTIPLE SCLEROSIS RELAPSE [None]
  - POSTOPERATIVE ADHESION [None]
  - SYNCOPE [None]
  - VOLVULUS [None]
